FAERS Safety Report 9643610 (Version 1)
Quarter: 2013Q4

REPORT INFORMATION
  Report Type: Report from Study
  Country: GB (occurrence: GB)
  Receive Date: 20131024
  Receipt Date: 20131024
  Transmission Date: 20140711
  Serious: Yes (Other)
  Sender: FDA-Public Use
  Company Number: GB-GLAXOSMITHKLINE-B0931954A

PATIENT
  Age: 50 Year
  Sex: Female

DRUGS (5)
  1. XELODA [Suspect]
     Indication: BREAST CANCER METASTATIC
     Route: 065
  2. ANTIBIOTIC CREAM [Concomitant]
  3. AVEENO [Concomitant]
  4. ZOMETA [Concomitant]
  5. TYVERB [Suspect]
     Indication: BREAST CANCER METASTATIC
     Route: 065

REACTIONS (15)
  - Haemorrhage [Unknown]
  - Palmar-plantar erythrodysaesthesia syndrome [Unknown]
  - Nail disorder [Unknown]
  - Gait disturbance [Unknown]
  - Ill-defined disorder [Unknown]
  - Onychomadesis [Unknown]
  - Wound secretion [Unknown]
  - Nail bed bleeding [Unknown]
  - Skin odour abnormal [Unknown]
  - Pain in extremity [Unknown]
  - Bone pain [Unknown]
  - Skin fissures [Unknown]
  - Pain [Unknown]
  - Discomfort [Unknown]
  - Fatigue [Unknown]
